FAERS Safety Report 6527087-4 (Version None)
Quarter: 2010Q1

REPORT INFORMATION
  Report Type: 
  Country: None (occurrence: None)
  Receive Date: 20100105
  Receipt Date: 20091230
  Transmission Date: 20100710
  Serious: Yes (Other)
  Sender: FDA-Public Use
  Company Number: US-AMGEN-US382069

PATIENT
  Age: 72 Year
  Sex: Male
  Weight: 61.2 kg

DRUGS (4)
  1. PANITUMUMAB [Suspect]
     Indication: OESOPHAGEAL CARCINOMA
     Dates: start: 20090904
  2. DOCETAXEL [Suspect]
     Dates: start: 20090904
  3. CISPLATIN [Suspect]
     Dates: start: 20090904
  4. RADIATION THERAPY [Concomitant]

REACTIONS (2)
  - LYMPHOPENIA [None]
  - WHITE BLOOD CELL COUNT DECREASED [None]
